FAERS Safety Report 8129822-0 (Version None)
Quarter: 2012Q1

REPORT INFORMATION
  Report Type: 
  Country: None (occurrence: None)
  Receive Date: 20120210
  Receipt Date: 20120210
  Transmission Date: 20120608
  Serious: No
  Sender: FDA-Public Use
  Company Number: None

PATIENT
  Age: 56 Year
  Sex: Female
  Weight: 87.996 kg

DRUGS (2)
  1. ZICAM COLD REMEDY SPRAY GEL [Suspect]
     Indication: NASOPHARYNGITIS
     Dosage: 1 PUMP PER NOSTRIL/GEL IN NOST
     Route: 045
     Dates: start: 20080101, end: 20110101
  2. ZICAM COLD SORE GEL SWABS [Concomitant]
     Indication: NASOPHARYNGITIS
     Dosage: APPLY INSIDE EACH NOSTRIL
     Route: 045
     Dates: start: 20080101, end: 20110101

REACTIONS (2)
  - ANOSMIA [None]
  - AGEUSIA [None]
